FAERS Safety Report 20719272 (Version 1)
Quarter: 2022Q2

REPORT INFORMATION
  Report Type: Spontaneous
  Country: US (occurrence: None)
  Receive Date: 20220416
  Receipt Date: 20220416
  Transmission Date: 20220720
  Serious: Yes (Hospitalization)
  Sender: FDA-Public Use
  Company Number: None

PATIENT
  Age: 55 Year
  Sex: Female
  Weight: 56.7 kg

DRUGS (1)
  1. BEBTELOVIMAB [Suspect]
     Active Substance: BEBTELOVIMAB
     Indication: COVID-19
     Dosage: OTHER FREQUENCY : ONCE;?
     Route: 042
     Dates: start: 20220416, end: 20220416

REACTIONS (9)
  - Hyperhidrosis [None]
  - Hyperventilation [None]
  - Eye movement disorder [None]
  - Malaise [None]
  - Headache [None]
  - Back pain [None]
  - Tremor [None]
  - Hypoaesthesia [None]
  - Aberrant motor behaviour [None]

NARRATIVE: CASE EVENT DATE: 20220416
